FAERS Safety Report 9694438 (Version 2)
Quarter: 2013Q4

REPORT INFORMATION
  Report Type: Spontaneous
  Country: US (occurrence: US)
  Receive Date: 20131118
  Receipt Date: 20131126
  Transmission Date: 20140711
  Serious: Yes (Death, Life-Threatening, Hospitalization, Other)
  Sender: FDA-Public Use
  Company Number: US-BAXTER-2013BAX044905

PATIENT
  Sex: Female

DRUGS (7)
  1. DIANEAL LOW CALCIUM [Suspect]
     Indication: PERITONEAL DIALYSIS
     Route: 033
     Dates: end: 20131110
  2. DIANEAL LOW CALCIUM [Suspect]
     Indication: PERITONEAL DIALYSIS
  3. DIANEAL LOW CALCIUM [Suspect]
     Indication: RENAL FAILURE CHRONIC
     Route: 033
     Dates: start: 201103, end: 20131110
  4. DIANEAL LOW CALCIUM [Suspect]
     Route: 033
     Dates: start: 201103
  5. DIANEAL LOW CALCIUM [Suspect]
     Route: 033
     Dates: start: 201103
  6. DIANEAL LOW CALCIUM (ULTRABAG) [Suspect]
     Indication: PERITONEAL DIALYSIS
     Route: 033
     Dates: end: 20131117
  7. DIANEAL LOW CALCIUM (ULTRABAG) [Suspect]
     Indication: PERITONEAL DIALYSIS

REACTIONS (8)
  - Calciphylaxis [Fatal]
  - Cardiac disorder [Fatal]
  - Renal failure [Fatal]
  - Multi-organ failure [Fatal]
  - Pain in extremity [Unknown]
  - Sepsis [Unknown]
  - Respiratory failure [Unknown]
  - Coagulopathy [Unknown]
